FAERS Safety Report 7715510-9 (Version None)
Quarter: 2011Q3

REPORT INFORMATION
  Report Type: 
  Country: None (occurrence: None)
  Receive Date: 20110810
  Receipt Date: 20110414
  Transmission Date: 20111222
  Serious: No
  Sender: FDA-Public Use
  Company Number: 1000020135

PATIENT
  Age: 31 Year
  Sex: Female

DRUGS (5)
  1. SAVELLA [Suspect]
     Indication: FIBROMYALGIA
     Dosage: 12.5 MG (12.5 MG, 1 IN 1 D), ORAL 50 MG (25 MG, 2 IN 1 D), ORAL
     Route: 048
     Dates: start: 20110411, end: 20110411
  2. SAVELLA [Suspect]
     Indication: FIBROMYALGIA
     Dosage: 12.5 MG (12.5 MG, 1 IN 1 D), ORAL 50 MG (25 MG, 2 IN 1 D), ORAL
     Route: 048
     Dates: start: 20110414, end: 20110401
  3. NAPROXEN [Concomitant]
  4. SAVELLA [Suspect]
     Indication: FIBROMYALGIA
     Dosage: 25 MG(12.5 MG, 2 IN1 D), ORAL,  50 MG (25 MG, 2 IN 1 D), ORAL
     Route: 048
     Dates: start: 20110412, end: 20110413
  5. SAVELLA [Suspect]
     Indication: FIBROMYALGIA
     Dosage: 25 MG(12.5 MG, 2 IN1 D), ORAL,  50 MG (25 MG, 2 IN 1 D), ORAL
     Route: 048
     Dates: start: 20110414

REACTIONS (1)
  - PRURITUS [None]
